FAERS Safety Report 11419165 (Version 1)
Quarter: 2015Q3

REPORT INFORMATION
  Report Type: Spontaneous
  Country: DE (occurrence: DE)
  Receive Date: 20150826
  Receipt Date: 20150826
  Transmission Date: 20151125
  Serious: Yes (Other)
  Sender: FDA-Public Use
  Company Number: PHHY2015DE100801

PATIENT
  Sex: Male

DRUGS (1)
  1. DIOVAN [Suspect]
     Active Substance: VALSARTAN
     Indication: PRODUCT USED FOR UNKNOWN INDICATION
     Dosage: 80 MG DURING DAYTIME AND 40 MG AT NIGHT
     Route: 065
     Dates: start: 201410, end: 20150815

REACTIONS (8)
  - Palpitations [Recovering/Resolving]
  - Blood pressure fluctuation [Not Recovered/Not Resolved]
  - Anxiety [Recovering/Resolving]
  - Flatulence [Recovering/Resolving]
  - Chest discomfort [Recovered/Resolved]
  - Renal cancer recurrent [Unknown]
  - Wheezing [Recovering/Resolving]
  - Dyspnoea [Recovered/Resolved]

NARRATIVE: CASE EVENT DATE: 2014
